FAERS Safety Report 4928620-6 (Version None)
Quarter: 2006Q1

REPORT INFORMATION
  Report Type: 
  Country: None (occurrence: None)
  Receive Date: 20060227
  Receipt Date: 20060227
  Transmission Date: 20060701
  Serious: No
  Sender: FDA-Public Use
  Company Number: None

PATIENT
  Age: 73 Year
  Sex: Female
  Weight: 76.2043 kg

DRUGS (2)
  1. TARGRETIN [Suspect]
     Indication: THYROID CANCER METASTATIC
     Dosage: 7 CAP   Q D  PO
     Route: 048
     Dates: start: 20050808, end: 20060215
  2. TAXOTERE [Suspect]
     Dosage: 45.5 MG  Q WK X3/4 WK   IV DRIP
     Route: 041
     Dates: start: 20050808, end: 20060215

REACTIONS (7)
  - ATELECTASIS [None]
  - CATHETER SITE INFLAMMATION [None]
  - CHILLS [None]
  - LUNG DISORDER [None]
  - PAIN [None]
  - PYREXIA [None]
  - SEPSIS [None]
